FAERS Safety Report 14958322 (Version 1)
Quarter: 2018Q2

REPORT INFORMATION
  Report Type: Spontaneous
  Country: US (occurrence: US)
  Receive Date: 20180531
  Receipt Date: 20180531
  Transmission Date: 20180711
  Serious: Yes (Other)
  Sender: FDA-Public Use
  Company Number: US-JNJFOC-20180531967

PATIENT
  Sex: Female
  Weight: 46.72 kg

DRUGS (15)
  1. COUMADIN [Concomitant]
     Active Substance: WARFARIN SODIUM
     Indication: ANTICOAGULANT THERAPY
     Route: 065
  2. OMEPRAZOLE. [Concomitant]
     Active Substance: OMEPRAZOLE
     Dosage: 2 TABLETS TWICE DAILY
     Route: 048
     Dates: end: 20171025
  3. FLORAJEN3 [Concomitant]
     Dosage: 1 CAPSULE DAILY, SHOULD WAIT AT LEAST 2 HOURS AFTER TAKING ANTIBIOTIC BEFORE TAKING THE DRUG
     Route: 048
  4. BENZONATATE. [Concomitant]
     Active Substance: BENZONATATE
     Dosage: 1 TABLET ONCE IN EVERY 8 HOURS
     Route: 048
  5. VENTOLIN HFA [Concomitant]
     Active Substance: ALBUTEROL SULFATE
     Dosage: 108 (90 BASE) MCG/ACT INHALATION AEROSOL SOLUTION; 2 PUFFS IN EVERY 4-6 HOURS
     Route: 055
  6. BETAPACE [Concomitant]
     Active Substance: SOTALOL HYDROCHLORIDE
     Indication: ATRIAL FIBRILLATION
     Dosage: 1/2 TABLET TWICE DAILY
     Route: 048
  7. AMLODIPINE BESYLATE. [Concomitant]
     Active Substance: AMLODIPINE BESYLATE
     Indication: HYPERTENSION
     Route: 048
  8. LATANOPROST. [Concomitant]
     Active Substance: LATANOPROST
     Dosage: 1 DROP IN EACH EYE DAILY
     Route: 047
  9. COZAAR [Concomitant]
     Active Substance: LOSARTAN POTASSIUM
     Indication: HYPERTENSION
     Route: 048
  10. FLONASE [Concomitant]
     Active Substance: FLUTICASONE PROPIONATE
     Dosage: 50 MCG/ACT
     Route: 045
  11. TYLENOL [Concomitant]
     Active Substance: ACETAMINOPHEN
     Route: 048
  12. XARELTO [Suspect]
     Active Substance: RIVAROXABAN
     Indication: PRODUCT USED FOR UNKNOWN INDICATION
     Route: 048
     Dates: end: 201805
  13. LEVOXYL [Concomitant]
     Active Substance: LEVOTHYROXINE SODIUM
     Route: 048
  14. BREO ELLIPTA [Concomitant]
     Active Substance: FLUTICASONE FUROATE\VILANTEROL TRIFENATATE
     Dosage: DOSE: 100-25 MCG/INH INHALATION AEROSOL POWDER BREATH; ONE INHALATION ONCE DAILY
     Route: 055
  15. MECLIZINE HYDROCHLORIDE. [Concomitant]
     Active Substance: MECLIZINE HYDROCHLORIDE
     Route: 048

REACTIONS (1)
  - Bradycardia [Unknown]
